FAERS Safety Report 23487734 (Version 2)
Quarter: 2024Q1

REPORT INFORMATION
  Report Type: Spontaneous
  Country: CA (occurrence: CA)
  Receive Date: 20240206
  Receipt Date: 20240212
  Transmission Date: 20240410
  Serious: Yes (Hospitalization)
  Sender: FDA-Public Use
  Company Number: CA-KARYOPHARM-2024KPT000054

PATIENT

DRUGS (4)
  1. XPOVIO [Suspect]
     Active Substance: SELINEXOR
     Indication: Plasma cell myeloma
     Dosage: 80 MG, ONCE WEEK
     Route: 048
     Dates: start: 20231219
  2. XPOVIO [Suspect]
     Active Substance: SELINEXOR
     Dosage: TAKE 3 TABLET OF 20MG (60MG) ONCE WEEKLY.
     Route: 048
     Dates: start: 202401, end: 202402
  3. DEXAMETHASONE [Concomitant]
     Active Substance: DEXAMETHASONE
     Dosage: UNK
  4. BORTEZOMIB [Concomitant]
     Active Substance: BORTEZOMIB
     Dosage: UNK

REACTIONS (2)
  - Adverse drug reaction [Unknown]
  - Disease progression [Unknown]
